FAERS Safety Report 8470743-1 (Version None)
Quarter: 2012Q2

REPORT INFORMATION
  Report Type: 
  Country: None (occurrence: None)
  Receive Date: 20120627
  Receipt Date: 20120619
  Transmission Date: 20120825
  Serious: Yes (Hospitalization)
  Sender: FDA-Public Use
  Company Number: US-BAYER-2012-062079

PATIENT
  Age: 21 Year
  Sex: Female
  Weight: 58.05 kg

DRUGS (2)
  1. ZOLOFT [Concomitant]
     Indication: ANXIETY DISORDER
  2. YAZ [Suspect]

REACTIONS (1)
  - PULMONARY EMBOLISM [None]
